FAERS Safety Report 4976955-3 (Version None)
Quarter: 2006Q2

REPORT INFORMATION
  Report Type: 
  Country: None (occurrence: None)
  Receive Date: 20060413
  Receipt Date: 20060404
  Transmission Date: 20061013
  Serious: Yes (Other)
  Sender: FDA-Public Use
  Company Number: MEDI-0004343

PATIENT
  Sex: Male

DRUGS (2)
  1. ETHYOL [Suspect]
     Indication: NEOPLASM MALIGNANT
  2. UNSPECIFIED MULTIPLE DRUGS [Concomitant]

REACTIONS (1)
  - LIVER FUNCTION TEST ABNORMAL [None]
